FAERS Safety Report 15311070 (Version 1)
Quarter: 2018Q3

REPORT INFORMATION
  Report Type: Report from Study
  Country: IN (occurrence: IN)
  Receive Date: 20180823
  Receipt Date: 20180823
  Transmission Date: 20181010
  Serious: Yes (Other)
  Sender: FDA-Public Use
  Company Number: PHHY2018IN076477

PATIENT
  Sex: Female
  Weight: 47 kg

DRUGS (1)
  1. TASIGNA [Suspect]
     Active Substance: NILOTINIB
     Indication: CHRONIC MYELOID LEUKAEMIA
     Dosage: 300 MG, BID
     Route: 048
     Dates: start: 20180403, end: 20180814

REACTIONS (6)
  - White blood cell count increased [Not Recovered/Not Resolved]
  - Drug ineffective [Unknown]
  - pH body fluid abnormal [Not Recovered/Not Resolved]
  - Haemoglobin abnormal [Not Recovered/Not Resolved]
  - Cytogenetic analysis abnormal [Not Recovered/Not Resolved]
  - Serum ferritin increased [Not Recovered/Not Resolved]
